FAERS Safety Report 7213209-9 (Version None)
Quarter: 2011Q1

REPORT INFORMATION
  Report Type: 
  Country: None (occurrence: None)
  Receive Date: 20110106
  Receipt Date: 20110104
  Transmission Date: 20110831
  Serious: Yes (Other)
  Sender: FDA-Public Use
  Company Number: US-AMGEN-USASP2010010588

PATIENT

DRUGS (2)
  1. ENBREL [Suspect]
     Indication: RHEUMATOID ARTHRITIS
     Dates: start: 20020601
  2. METHOTREXATE [Suspect]
     Dosage: 10 MG, QWK
     Dates: start: 20100601

REACTIONS (1)
  - PROSTATE CANCER [None]
